FAERS Safety Report 7235994-2 (Version None)
Quarter: 2011Q1

REPORT INFORMATION
  Report Type: 
  Country: None (occurrence: None)
  Receive Date: 20110120
  Receipt Date: 20110118
  Transmission Date: 20110831
  Serious: Yes (Life-Threatening)
  Sender: FDA-Public Use
  Company Number: B0694531A

PATIENT
  Sex: Female

DRUGS (4)
  1. TETRALYSAL [Concomitant]
     Route: 048
  2. FLIXOTIDE [Concomitant]
     Indication: ASTHMA
     Route: 055
     Dates: start: 20100901
  3. CLINDOXYL [Suspect]
     Indication: ACNE
     Route: 062
     Dates: start: 20100901, end: 20100901
  4. SINGULAIR [Concomitant]

REACTIONS (4)
  - URTICARIA [None]
  - ERYTHEMA [None]
  - SKIN REACTION [None]
  - DYSPNOEA [None]
